FAERS Safety Report 6256246-3 (Version None)
Quarter: 2009Q3

REPORT INFORMATION
  Report Type: 
  Country: None (occurrence: None)
  Receive Date: 20090706
  Receipt Date: 20090427
  Transmission Date: 20100115
  Serious: No
  Sender: FDA-Public Use
  Company Number: A0780780A

PATIENT
  Age: 66 Year
  Sex: Female

DRUGS (9)
  1. ADVAIR HFA [Suspect]
     Indication: CHRONIC OBSTRUCTIVE PULMONARY DISEASE
     Dosage: 1PUFF TWICE PER DAY
     Route: 055
     Dates: start: 20090201
  2. ADVAIR HFA [Suspect]
     Dosage: 1PUFF TWICE PER DAY
     Route: 055
  3. SYNTHROID [Concomitant]
  4. PREMARIN [Concomitant]
  5. PROTONIX [Concomitant]
  6. EFFEXOR [Concomitant]
  7. WELLBUTRIN [Concomitant]
  8. LIPITOR [Concomitant]
  9. ANTIBIOTIC [Concomitant]

REACTIONS (3)
  - DYSPHONIA [None]
  - OROPHARYNGEAL PAIN [None]
  - SPEECH DISORDER [None]
